FAERS Safety Report 8101149-2 (Version None)
Quarter: 2012Q1

REPORT INFORMATION
  Report Type: 
  Country: None (occurrence: None)
  Receive Date: 20120129
  Receipt Date: 20111014
  Transmission Date: 20120608
  Serious: No
  Sender: FDA-Public Use
  Company Number: US-ABBOTT-11P-163-0863775-00

PATIENT

DRUGS (2)
  1. HUMIRA [Suspect]
  2. HUMIRA [Suspect]
     Indication: CROHN'S DISEASE
     Dates: start: 20110928

REACTIONS (6)
  - NASAL CONGESTION [None]
  - EYE SWELLING [None]
  - OEDEMA PERIPHERAL [None]
  - SINUS DISORDER [None]
  - SINUS HEADACHE [None]
  - FATIGUE [None]
